FAERS Safety Report 23457300 (Version 2)
Quarter: 2024Q1

REPORT INFORMATION
  Report Type: Spontaneous
  Country: IT (occurrence: IT)
  Receive Date: 20240130
  Receipt Date: 20240206
  Transmission Date: 20240410
  Serious: Yes (Other)
  Sender: FDA-Public Use
  Company Number: IT-SA-SAC20240130000603

PATIENT
  Age: 61 Year
  Sex: Male

DRUGS (4)
  1. METHYLPREDNISOLONE [Suspect]
     Active Substance: METHYLPREDNISOLONE
     Indication: COVID-19
     Dosage: UNK
     Dates: start: 2020
  2. CHLOROQUINE [Suspect]
     Active Substance: CHLOROQUINE
     Indication: COVID-19
     Dosage: UNK
     Dates: start: 2020
  3. ENOXAPARIN SODIUM [Suspect]
     Active Substance: ENOXAPARIN SODIUM
     Indication: COVID-19
     Dosage: UNK
     Dates: start: 2020
  4. LOPINAVIR\RITONAVIR [Suspect]
     Active Substance: LOPINAVIR\RITONAVIR
     Indication: COVID-19
     Dosage: UNK
     Dates: start: 2020

REACTIONS (5)
  - Hepatitis [Unknown]
  - Hepatic steatosis [Unknown]
  - Portal tract inflammation [Unknown]
  - Metaplasia [Unknown]
  - Off label use [Unknown]
